FAERS Safety Report 23800376 (Version 1)
Quarter: 2024Q2

REPORT INFORMATION
  Report Type: Spontaneous
  Country: US (occurrence: None)
  Receive Date: 20240429
  Receipt Date: 20240429
  Transmission Date: 20240715
  Serious: Yes (Hospitalization)
  Sender: FDA-Public Use
  Company Number: None

PATIENT
  Age: 79 Year
  Sex: Male
  Weight: 49 kg

DRUGS (1)
  1. OBINUTUZUMAB [Suspect]
     Active Substance: OBINUTUZUMAB
     Indication: Chronic lymphocytic leukaemia
     Dosage: 100 MG ONCE IV?
     Route: 042
     Dates: start: 20221014, end: 20221014

REACTIONS (7)
  - Blood pressure decreased [None]
  - Heart rate increased [None]
  - Sickle cell anaemia with crisis [None]
  - Oxygen saturation decreased [None]
  - Dyspnoea [None]
  - Tachycardia [None]
  - Chest discomfort [None]

NARRATIVE: CASE EVENT DATE: 20221014
